FAERS Safety Report 4588872-1 (Version None)
Quarter: 2005Q1

REPORT INFORMATION
  Report Type: 
  Country: None (occurrence: None)
  Receive Date: 20050222
  Receipt Date: 20050214
  Transmission Date: 20050727
  Serious: Yes (Other)
  Sender: FDA-Public Use
  Company Number: FRPFM-20050024

PATIENT
  Age: 16 Month
  Sex: Male

DRUGS (2)
  1. CIBLOR [Suspect]
     Indication: EAR INFECTION
     Dates: start: 20050123, end: 20050129
  2. NO CONCURRENT MEDICATION [Concomitant]

REACTIONS (3)
  - ERYTHEMA MULTIFORME [None]
  - SKIN INFECTION [None]
  - VIRAL INFECTION [None]
